FAERS Safety Report 5253762-8 (Version None)
Quarter: 2007Q1

REPORT INFORMATION
  Report Type: 
  Country: None (occurrence: None)
  Receive Date: 20070227
  Receipt Date: 20070220
  Transmission Date: 20070707
  Serious: Yes (Death)
  Sender: FDA-Public Use
  Company Number: 163-21880-07020077

PATIENT
  Age: 81 Year
  Sex: Female

DRUGS (2)
  1. REVLIMID [Suspect]
     Indication: MYELODYSPLASTIC SYNDROME
     Dosage: 10 MG, 1 IN 1 D, ORAL, 10-5 MG, DAILY, ORAL
     Route: 048
     Dates: start: 20060201, end: 20060401
  2. REVLIMID [Suspect]
     Indication: MYELODYSPLASTIC SYNDROME
     Dosage: 10 MG, 1 IN 1 D, ORAL, 10-5 MG, DAILY, ORAL
     Route: 048
     Dates: start: 20060501, end: 20060601

REACTIONS (1)
  - DISEASE PROGRESSION [None]
